FAERS Safety Report 13685503 (Version 1)
Quarter: 2017Q2

REPORT INFORMATION
  Report Type: Spontaneous
  Country: US (occurrence: US)
  Receive Date: 20170623
  Receipt Date: 20170623
  Transmission Date: 20170830
  Serious: Yes (Hospitalization)
  Sender: FDA-Public Use
  Company Number: US-BAYER-2017-115223

PATIENT
  Age: 1 Year
  Sex: Male
  Weight: 12 kg

DRUGS (1)
  1. COPPERTONE ULTRAGUARD SPF 50 [Suspect]
     Active Substance: AVOBENZONE\HOMOSALATE\OCTISALATE\OCTOCRYLENE\OXYBENZONE
     Indication: THERAPEUTIC SKIN CARE TOPICAL
     Dosage: UNK UNK, PRN
     Route: 061

REACTIONS (10)
  - Hypersensitivity [Recovered/Resolved]
  - Abnormal behaviour [Recovered/Resolved]
  - Lacrimation increased [Recovered/Resolved]
  - Mental status changes [Recovered/Resolved]
  - Erythema [Recovered/Resolved]
  - Ocular hyperaemia [Recovered/Resolved]
  - Restlessness [Recovered/Resolved]
  - Accidental exposure to product [None]
  - Crying [Recovered/Resolved]
  - Rhinorrhoea [Recovered/Resolved]
